FAERS Safety Report 7769528-0 (Version None)
Quarter: 2011Q3

REPORT INFORMATION
  Report Type: 
  Country: None (occurrence: None)
  Receive Date: 20110922
  Receipt Date: 20100810
  Transmission Date: 20111222
  Serious: No
  Sender: FDA-Public Use
  Company Number: US-ASTRAZENECA-2010SE37521

PATIENT
  Age: 86 Year
  Sex: Female

DRUGS (1)
  1. SEROQUEL XR [Suspect]
     Indication: NEURALGIA
     Route: 048
     Dates: start: 20100724, end: 20100801

REACTIONS (3)
  - HEADACHE [None]
  - MALAISE [None]
  - INSOMNIA [None]
